FAERS Safety Report 25041007 (Version 1)
Quarter: 2025Q1

REPORT INFORMATION
  Report Type: Spontaneous
  Country: US (occurrence: None)
  Receive Date: 20250305
  Receipt Date: 20250305
  Transmission Date: 20250409
  Serious: Yes (Life-Threatening, Hospitalization, Disabling)
  Sender: FDA-CTU
  Company Number: None

PATIENT
  Age: 26 Year
  Sex: Female
  Weight: 72 kg

DRUGS (6)
  1. ASHLYNA [Suspect]
     Active Substance: ETHINYL ESTRADIOL\LEVONORGESTREL
     Indication: Contraception
     Dosage: OTHER QUANTITY : 91 TABLET(S);?FREQUENCY : DAILY;?
     Route: 048
     Dates: start: 20200701, end: 20201107
  2. XARELTO [Concomitant]
     Active Substance: RIVAROXABAN
  3. GABAPENTIN [Concomitant]
     Active Substance: GABAPENTIN
  4. HYDROXYZINE [Concomitant]
     Active Substance: HYDROXYZINE HYDROCHLORIDE
  5. ALBUTEROL [Concomitant]
     Active Substance: ALBUTEROL
  6. NEXIUM [Concomitant]
     Active Substance: ESOMEPRAZOLE MAGNESIUM

REACTIONS (7)
  - Thrombosis [None]
  - Dysstasia [None]
  - Dyspnoea [None]
  - Pulmonary thrombosis [None]
  - Thrombosis in device [None]
  - Vascular stent thrombosis [None]
  - Device occlusion [None]

NARRATIVE: CASE EVENT DATE: 20201104
